FAERS Safety Report 5254153-6 (Version None)
Quarter: 2007Q1

REPORT INFORMATION
  Report Type: 
  Country: None (occurrence: None)
  Receive Date: 20070302
  Receipt Date: 20070223
  Transmission Date: 20070707
  Serious: Yes (Hospitalization)
  Sender: FDA-Public Use
  Company Number: FRWYE766823FEB07

PATIENT
  Age: 50 Year
  Sex: Female

DRUGS (9)
  1. EFFEXOR [Suspect]
     Indication: DEPRESSION
     Dosage: 100 MG TOTAL DAILY
     Route: 048
     Dates: end: 20061201
  2. EFFEXOR [Interacting]
     Route: 048
     Dates: start: 20061201
  3. LEVOTHYROXINE SODIUM [Concomitant]
     Dosage: 150 UG; FREQUENCY UNSPEC.
     Route: 048
  4. ETHANOL [Concomitant]
     Dosage: OVERDOSE AMOUNT: UNKNOWN
     Route: 048
     Dates: start: 20061209, end: 20061209
  5. TRIATEC [Concomitant]
     Route: 048
  6. TAHOR [Concomitant]
     Route: 048
  7. KARDEGIC [Interacting]
     Route: 048
  8. LEXOMIL [Concomitant]
     Route: 048
     Dates: end: 20061208
  9. LEXOMIL [Concomitant]
     Dosage: OVERDOSE AMOUNT: UNKNOWN
     Route: 048
     Dates: start: 20061209, end: 20061209

REACTIONS (5)
  - ALCOHOL POISONING [None]
  - DRUG INTERACTION [None]
  - IRON DEFICIENCY ANAEMIA [None]
  - OVERDOSE [None]
  - SUICIDE ATTEMPT [None]
